FAERS Safety Report 20761052 (Version 3)
Quarter: 2023Q1

REPORT INFORMATION
  Report Type: Report from Study
  Country: US (occurrence: US)
  Receive Date: 20220428
  Receipt Date: 20230306
  Transmission Date: 20230418
  Serious: Yes (Other)
  Sender: FDA-Public Use
  Company Number: US-TAKEDA-2021TUS022373

PATIENT
  Age: 45 Year
  Sex: Female
  Weight: 79.773 kg

DRUGS (32)
  1. HUMAN IMMUNOGLOBULIN G [Suspect]
     Active Substance: HUMAN IMMUNOGLOBULIN G
     Indication: Polyneuropathy
     Dosage: 30 GRAM, Q2WEEKS
     Route: 042
     Dates: start: 20220209
  2. HUMAN IMMUNOGLOBULIN G [Suspect]
     Active Substance: HUMAN IMMUNOGLOBULIN G
     Indication: Sarcoidosis
     Dosage: 30 GRAM
     Route: 042
     Dates: start: 20220309
  3. ACETAMINOPHEN [Concomitant]
     Active Substance: ACETAMINOPHEN
  4. DIPHENHYDRAMINE HYDROCHLORIDE [Concomitant]
     Active Substance: DIPHENHYDRAMINE HYDROCHLORIDE
  5. SODIUM CHLORIDE [Concomitant]
     Active Substance: SODIUM CHLORIDE
  6. SODIUM CHLORIDE [Concomitant]
     Active Substance: SODIUM CHLORIDE
  7. PROCHLORPERAZINE [Concomitant]
     Active Substance: PROCHLORPERAZINE
  8. ADRENALIN [Concomitant]
     Active Substance: EPINEPHRINE
  9. COMPAZINE [Concomitant]
     Active Substance: PROCHLORPERAZINE MALEATE
  10. EPINEPHRINE [Concomitant]
     Active Substance: EPINEPHRINE
  11. Lmx [Concomitant]
  12. SOLU-CORTEF MIX O [Concomitant]
  13. BACLOFEN [Concomitant]
     Active Substance: BACLOFEN
  14. TRULICITY [Concomitant]
     Active Substance: DULAGLUTIDE
  15. EMGALITY [Concomitant]
     Active Substance: GALCANEZUMAB-GNLM
  16. KETOROLAC TROMETHAMINE [Concomitant]
     Active Substance: KETOROLAC TROMETHAMINE
  17. CLONAZEPAM [Concomitant]
     Active Substance: CLONAZEPAM
  18. CYCLOBENZAPRINE [Concomitant]
     Active Substance: CYCLOBENZAPRINE
  19. ACETAMINOPHEN\OXYCODONE HYDROCHLORIDE\OXYCODONE TEREPHTHALATE [Concomitant]
     Active Substance: ACETAMINOPHEN\OXYCODONE HYDROCHLORIDE\OXYCODONE TEREPHTHALATE
  20. LISINOPRIL [Concomitant]
     Active Substance: LISINOPRIL
  21. METFORMIN HYDROCHLORIDE [Concomitant]
     Active Substance: METFORMIN HYDROCHLORIDE
  22. POTASSIUM [Concomitant]
     Active Substance: POTASSIUM
  23. FOLIC ACID [Concomitant]
     Active Substance: FOLIC ACID
  24. GABAPENTIN [Concomitant]
     Active Substance: GABAPENTIN
  25. FUROSEMIDE [Concomitant]
     Active Substance: FUROSEMIDE
  26. BIOTIN [Concomitant]
     Active Substance: BIOTIN
  27. HEPARIN [Concomitant]
     Active Substance: HEPARIN SODIUM
  28. ZYRTEC [Concomitant]
     Active Substance: CETIRIZINE HYDROCHLORIDE
  29. RIZATRIPTAN [Concomitant]
     Active Substance: RIZATRIPTAN
  30. TAMSULOSIN [Concomitant]
     Active Substance: TAMSULOSIN
  31. TOPAMAX [Concomitant]
     Active Substance: TOPIRAMATE
  32. AZELAIC ACID [Concomitant]
     Active Substance: AZELAIC ACID

REACTIONS (7)
  - Neuropathy peripheral [Unknown]
  - Myopathy [Unknown]
  - Muscle spasms [Unknown]
  - Back pain [Unknown]
  - Rash [Recovered/Resolved]
  - Product use issue [Unknown]
  - Off label use [Unknown]

NARRATIVE: CASE EVENT DATE: 20220209
